FAERS Safety Report 24908920 (Version 1)
Quarter: 2025Q1

REPORT INFORMATION
  Report Type: Spontaneous
  Country: CN (occurrence: CN)
  Receive Date: 20250131
  Receipt Date: 20250131
  Transmission Date: 20250408
  Serious: Yes (Other)
  Sender: NOVARTIS
  Company Number: CN-002147023-NVSC2024CN247930

PATIENT
  Age: 69 Year
  Sex: Female
  Weight: 48.5 kg

DRUGS (1)
  1. DIOVAN [Suspect]
     Active Substance: VALSARTAN
     Indication: Hypertension
     Route: 048

REACTIONS (2)
  - Blood pressure systolic increased [Recovering/Resolving]
  - Hypotension [Unknown]
